FAERS Safety Report 9115158 (Version 2)
Quarter: 2013Q2

REPORT INFORMATION
  Report Type: Spontaneous
  Country: FR (occurrence: FR)
  Receive Date: 20130225
  Receipt Date: 20130530
  Transmission Date: 20140414
  Serious: Yes (Other)
  Sender: FDA-Public Use
  Company Number: FR-JNJFOC-20130212443

PATIENT
  Age: 18 Year
  Sex: Female

DRUGS (1)
  1. EVRA [Suspect]
     Indication: CONTRACEPTION
     Route: 062
     Dates: start: 201212

REACTIONS (5)
  - Protein S decreased [Not Recovered/Not Resolved]
  - Venous occlusion [Unknown]
  - Phlebitis superficial [Unknown]
  - Inappropriate schedule of drug administration [Unknown]
  - Wrong technique in drug usage process [Unknown]
